FAERS Safety Report 24317617 (Version 2)
Quarter: 2024Q4

REPORT INFORMATION
  Report Type: Spontaneous
  Country: ZA (occurrence: ZA)
  Receive Date: 20240913
  Receipt Date: 20241209
  Transmission Date: 20250114
  Serious: Yes (Other)
  Sender: ALEXION PHARMACEUTICALS
  Company Number: 2024A204319

PATIENT
  Age: 55 Year

DRUGS (4)
  1. DAPAGLIFLOZIN PROPANEDIOL [Suspect]
     Active Substance: DAPAGLIFLOZIN PROPANEDIOL
     Indication: Type 2 diabetes mellitus
     Dosage: 10 MILLIGRAM, UNK
  2. ECOTRIN [Concomitant]
     Active Substance: ASPIRIN
     Dosage: 81 MILLIGRAM, UNK
  3. LIPOGEN [Concomitant]
     Indication: Blood cholesterol
     Dosage: 20 MILLIGRAM, UNK
  4. METFORMIN HYDROCHLORIDE [Concomitant]
     Active Substance: METFORMIN HYDROCHLORIDE
     Indication: Type 2 diabetes mellitus
     Dosage: 1000 MILLIGRAM, UNK

REACTIONS (1)
  - Cerebrovascular accident [Unknown]
